FAERS Safety Report 7744235-9 (Version None)
Quarter: 2011Q3

REPORT INFORMATION
  Report Type: 
  Country: None (occurrence: None)
  Receive Date: 20110912
  Receipt Date: 20110902
  Transmission Date: 20111222
  Serious: Yes (Other)
  Sender: FDA-Public Use
  Company Number: PHHY2011US79479

PATIENT
  Age: 56 Year
  Sex: Female

DRUGS (2)
  1. POTASSIUM CHLORIDE [Suspect]
     Route: 048
  2. LISINOPRIL [Suspect]
     Route: 048

REACTIONS (13)
  - TACHYCARDIA [None]
  - PULSE ABSENT [None]
  - CARDIAC ARREST [None]
  - INTENTIONAL OVERDOSE [None]
  - LETHARGY [None]
  - HYPERKALAEMIA [None]
  - DEPRESSION [None]
  - UNRESPONSIVE TO STIMULI [None]
  - RESPIRATION ABNORMAL [None]
  - VENTRICULAR FIBRILLATION [None]
  - SUICIDE ATTEMPT [None]
  - HYPOTENSION [None]
  - BRADYCARDIA [None]
